FAERS Safety Report 10218386 (Version 1)
Quarter: 2014Q2

REPORT INFORMATION
  Report Type: Spontaneous
  Country: GB (occurrence: GB)
  Receive Date: 20140605
  Receipt Date: 20140605
  Transmission Date: 20141212
  Serious: Yes (Hospitalization)
  Sender: FDA-Public Use
  Company Number: GB-TEVA-483872ISR

PATIENT
  Age: 39 Year
  Sex: Female

DRUGS (13)
  1. DOXORUBICIN [Suspect]
     Indication: HODGKIN^S DISEASE
     Dosage: 25MG/M2
     Route: 042
     Dates: start: 20140509, end: 20140509
  2. BLEOMYCIN [Suspect]
     Indication: HODGKIN^S DISEASE
     Dosage: 10,000 UNITS/M2
     Route: 042
     Dates: start: 20140509, end: 20140509
  3. DACARBAZINE [Suspect]
     Indication: HODGKIN^S DISEASE
     Route: 042
     Dates: start: 20140509, end: 20140509
  4. VINBLASTINE [Suspect]
     Indication: HODGKIN^S DISEASE
     Route: 042
     Dates: start: 20140509, end: 20140509
  5. CO-TRIMOXAZOLE [Concomitant]
     Dosage: 960 MILLIGRAM DAILY; ON MON, WED AND FRI, ONGOING.
     Route: 048
  6. ALLOPURINOL [Concomitant]
     Dosage: 300 MILLIGRAM DAILY; FOR FOUR WEEKS, 1ST CYCLE.
     Route: 048
  7. ONDANSETRON [Concomitant]
     Dosage: 1-2 TWICE DAILY FOR 2 DAYS POST CHEMO.
  8. DEXAMETHASONE [Concomitant]
     Dosage: 8 MILLIGRAM DAILY; DAYS 1-3 AND 15-17.
  9. CYCLIZINE [Concomitant]
     Dosage: 150 MILLIGRAM DAILY; POST CHEMO.
  10. DOMPERIDONE [Concomitant]
     Dosage: 4 TIMES DAILY WHEN REQUIRED FOR 5 DAYS POST CHEMO.
  11. DOCUSATE SODIUM [Concomitant]
     Dosage: 200 MILLIGRAM DAILY; AT NIGHT POST CHEMO.
  12. TRAMADOL [Concomitant]
     Indication: HEADACHE
     Dosage: 1-2 FOUR TIMES DAILY WHEN REQUIRED. ONGOING.
  13. PARACETAMOL [Concomitant]
     Dosage: 4 GRAM DAILY; ON GOING.
     Route: 048

REACTIONS (4)
  - Migraine [Recovered/Resolved]
  - Malaise [Recovered/Resolved]
  - Photopsia [Recovered/Resolved]
  - Malaise [Recovered/Resolved]
